FAERS Safety Report 12925965 (Version 1)
Quarter: 2016Q4

REPORT INFORMATION
  Report Type: Spontaneous
  Country: US (occurrence: US)
  Receive Date: 20161108
  Receipt Date: 20161108
  Transmission Date: 20170207
  Serious: No
  Sender: FDA-Public Use
  Company Number: US-SA-2016SA178726

PATIENT
  Age: 65 Year
  Sex: Female

DRUGS (2)
  1. PRALUENT [Suspect]
     Active Substance: ALIROCUMAB
     Indication: TYPE V HYPERLIPIDAEMIA
     Route: 058
     Dates: start: 20160811
  2. ALIROCUMAB PREFILLED PEN [Concomitant]
     Active Substance: ALIROCUMAB
     Dates: start: 20160811

REACTIONS (3)
  - Diarrhoea [Recovered/Resolved]
  - Migraine [Recovered/Resolved]
  - Rhinitis [Recovered/Resolved]

NARRATIVE: CASE EVENT DATE: 20160811
